FAERS Safety Report 8627773 (Version 4)
Quarter: 2012Q4

REPORT INFORMATION
  Report Type: 
  Country: US (occurrence: US)
  Receive Date: 20120621
  Receipt Date: 20120913
  Transmission Date: 20130627
  Serious: Yes (Hospitalization, Other)
  Sender: FDA-Public Use
  Company Number: US-ASTRAZENECA-2012SE28384

PATIENT
  Age: 58 Year
  Sex: Male
  Weight: 91.2 kg

DRUGS (4)
  1. SEROQUEL XR [Suspect]
     Indication: SLEEP DISORDER
     Route: 048
     Dates: end: 20120522
  2. SEROQUEL XR [Suspect]
     Indication: MAJOR DEPRESSION
     Route: 048
     Dates: end: 20120522
  3. SEROQUEL XR [Suspect]
     Indication: SLEEP DISORDER
     Route: 048
  4. SEROQUEL XR [Suspect]
     Indication: MAJOR DEPRESSION
     Route: 048

REACTIONS (9)
  - Neoplasm malignant [Unknown]
  - Coronary artery occlusion [Unknown]
  - Thrombosis [Unknown]
  - Myocardial infarction [Unknown]
  - Cardiac disorder [Unknown]
  - Pain [Unknown]
  - Insomnia [Unknown]
  - Intentional drug misuse [Unknown]
  - Off label use [Unknown]
